FAERS Safety Report 7682207-3 (Version None)
Quarter: 2011Q3

REPORT INFORMATION
  Report Type: 
  Country: None (occurrence: None)
  Receive Date: 20110815
  Receipt Date: 20110812
  Transmission Date: 20111222
  Serious: No
  Sender: FDA-Public Use
  Company Number: US-PFIZER INC-2011186353

PATIENT
  Sex: Female

DRUGS (4)
  1. RESTORIL [Concomitant]
     Indication: SLEEP DISORDER
     Dosage: UNK
  2. LAMICTAL [Concomitant]
     Dosage: UNK
  3. NEURONTIN [Concomitant]
     Dosage: UNK
  4. GEODON [Suspect]
     Dosage: UNK
     Dates: end: 20110101

REACTIONS (2)
  - NAUSEA [None]
  - MALAISE [None]
